FAERS Safety Report 6265536-X (Version None)
Quarter: 2009Q3

REPORT INFORMATION
  Report Type: 
  Country: None (occurrence: None)
  Receive Date: 20090713
  Receipt Date: 20090707
  Transmission Date: 20100115
  Serious: Yes (Other)
  Sender: FDA-Public Use
  Company Number: US-ASTRAZENECA-2009UW10391

PATIENT
  Age: 27339 Day
  Sex: Female
  Weight: 61.7 kg

DRUGS (1)
  1. CRESTOR [Suspect]
     Route: 048
     Dates: start: 20090316, end: 20090423

REACTIONS (2)
  - LIP SWELLING [None]
  - SWELLING FACE [None]
